FAERS Safety Report 7215120-6 (Version None)
Quarter: 2011Q1

REPORT INFORMATION
  Report Type: 
  Country: None (occurrence: None)
  Receive Date: 20110107
  Receipt Date: 20101110
  Transmission Date: 20110831
  Serious: No
  Sender: FDA-Public Use
  Company Number: A0878390A

PATIENT
  Age: 83 Year
  Sex: Female

DRUGS (9)
  1. CELEBREX [Concomitant]
  2. ACIPHEX [Concomitant]
  3. FEMARA [Concomitant]
  4. ASPIRIN [Concomitant]
  5. M.V.I. [Concomitant]
  6. RED YEAST RICE [Concomitant]
  7. ZETIA [Concomitant]
  8. LEVOXYL [Concomitant]
  9. LOVAZA [Suspect]
     Dosage: 1G THREE TIMES PER DAY
     Route: 048
     Dates: start: 20090801

REACTIONS (4)
  - PRODUCT ODOUR ABNORMAL [None]
  - NAUSEA [None]
  - PRODUCT QUALITY ISSUE [None]
  - DYSGEUSIA [None]
